FAERS Safety Report 5531752-5 (Version None)
Quarter: 2007Q4

REPORT INFORMATION
  Report Type: 
  Country: None (occurrence: None)
  Receive Date: 20071128
  Receipt Date: 20071119
  Transmission Date: 20080405
  Serious: Yes (Other)
  Sender: FDA-Public Use
  Company Number: 2007RL000518

PATIENT
  Age: 38 Year
  Sex: Female

DRUGS (2)
  1. LOVAZA [Suspect]
     Indication: HYPERLIPIDAEMIA
     Dosage: 1 GM, QID;PO
     Route: 048
     Dates: start: 20070913, end: 20070917
  2. TRICOR [Concomitant]

REACTIONS (8)
  - EAR PAIN [None]
  - GALACTOSTASIS [None]
  - INCREASED UPPER AIRWAY SECRETION [None]
  - MENORRHAGIA [None]
  - NIPPLE SWELLING [None]
  - PHARYNGOLARYNGEAL PAIN [None]
  - PURULENCE [None]
  - VULVAL ABSCESS [None]
